FAERS Safety Report 6371501-4 (Version None)
Quarter: 2009Q3

REPORT INFORMATION
  Report Type: 
  Country: None (occurrence: None)
  Receive Date: 20090923
  Receipt Date: 20080411
  Transmission Date: 20100115
  Serious: Yes (Hospitalization, Other)
  Sender: FDA-Public Use
  Company Number: US-ASTRAZENECA-2007UW21472

PATIENT
  Age: 10552 Day
  Sex: Male

DRUGS (7)
  1. SEROQUEL [Suspect]
     Indication: ANXIETY
     Dosage: 300 MG, TWO TABLET IN MORNING, THREE TABLET IN NIGHT
     Route: 048
     Dates: start: 20060619
  2. SEROQUEL [Suspect]
     Indication: DEPRESSION
     Dosage: 300 MG, TWO TABLET IN MORNING, THREE TABLET IN NIGHT
     Route: 048
     Dates: start: 20060619
  3. SEROQUEL [Suspect]
     Indication: BIPOLAR DISORDER
     Dosage: 300 MG, TWO TABLET IN MORNING, THREE TABLET IN NIGHT
     Route: 048
     Dates: start: 20060619
  4. SEROQUEL [Suspect]
     Dosage: 300MG-1200MG
     Route: 048
     Dates: start: 20060701, end: 20061106
  5. SEROQUEL [Suspect]
     Dosage: 300MG-1200MG
     Route: 048
     Dates: start: 20060701, end: 20061106
  6. SEROQUEL [Suspect]
     Dosage: 300MG-1200MG
     Route: 048
     Dates: start: 20060701, end: 20061106
  7. ABILIFY [Concomitant]
     Route: 048

REACTIONS (5)
  - DIABETES MELLITUS [None]
  - DIABETIC COMA [None]
  - DIABETIC KETOACIDOSIS [None]
  - RENAL FAILURE ACUTE [None]
  - TYPE 1 DIABETES MELLITUS [None]
